FAERS Safety Report 24547539 (Version 2)
Quarter: 2025Q2

REPORT INFORMATION
  Report Type: Spontaneous
  Country: ZA (occurrence: ZA)
  Receive Date: 20241025
  Receipt Date: 20250529
  Transmission Date: 20250716
  Serious: Yes (Other)
  Sender: CIPLA
  Company Number: ZA-CIPLA LTD.-2024ZA11774

PATIENT

DRUGS (2)
  1. ALBUTEROL SULFATE [Suspect]
     Active Substance: ALBUTEROL SULFATE
     Indication: Lung disorder
     Route: 065
  2. ALBUTEROL SULFATE [Suspect]
     Active Substance: ALBUTEROL SULFATE
     Indication: Dyspnoea
     Route: 065

REACTIONS (4)
  - Lower respiratory tract infection [Unknown]
  - Drug dose omission by device [Unknown]
  - Device malfunction [Unknown]
  - Device delivery system issue [Unknown]
